FAERS Safety Report 8334436-3 (Version None)
Quarter: 2012Q2

REPORT INFORMATION
  Report Type: 
  Country: None (occurrence: None)
  Receive Date: 20120503
  Receipt Date: 20111212
  Transmission Date: 20120825
  Serious: No
  Sender: FDA-Public Use
  Company Number: US-BAUSCH-2011BL008770

PATIENT
  Age: 52 Year
  Sex: Female

DRUGS (3)
  1. LOTEMAX [Suspect]
     Indication: OCULAR HYPERAEMIA
     Route: 047
     Dates: start: 20110922
  2. LOTEMAX [Suspect]
     Indication: OFF LABEL USE
     Route: 047
     Dates: start: 20110922
  3. CIPROFLOXACIN HCL [Concomitant]
     Indication: EYE INFECTION
     Route: 047
     Dates: start: 20111025, end: 20111029

REACTIONS (4)
  - OCULAR HYPERAEMIA [None]
  - CONDITION AGGRAVATED [None]
  - EYE SWELLING [None]
  - LACRIMATION INCREASED [None]
